FAERS Safety Report 20840602 (Version 3)
Quarter: 2022Q4

REPORT INFORMATION
  Report Type: Spontaneous
  Country: US (occurrence: US)
  Receive Date: 20220517
  Receipt Date: 20221216
  Transmission Date: 20230113
  Serious: Yes (Other)
  Sender: FDA-Public Use
  Company Number: US-PFIZER INC-202200587186

PATIENT
  Age: 75 Year
  Sex: Female
  Weight: 81.19 kg

DRUGS (1)
  1. XELJANZ XR [Suspect]
     Active Substance: TOFACITINIB CITRATE
     Indication: Rheumatoid arthritis
     Dosage: 11 MG, 1X/DAY
     Route: 048
     Dates: end: 202211

REACTIONS (33)
  - Haematochezia [Unknown]
  - Melaena [Unknown]
  - Sjogren^s syndrome [Unknown]
  - Pain [Unknown]
  - Musculoskeletal stiffness [Unknown]
  - Pyrexia [Unknown]
  - Infection [Unknown]
  - Fatigue [Unknown]
  - Eye symptom [Unknown]
  - Visual impairment [Unknown]
  - Stomatitis [Unknown]
  - Oral disorder [Unknown]
  - Skin lesion [Unknown]
  - Chest pain [Unknown]
  - Cough [Unknown]
  - Exercise tolerance decreased [Unknown]
  - Blood pressure abnormal [Unknown]
  - Joint effusion [Unknown]
  - Abdominal pain [Unknown]
  - Change of bowel habit [Unknown]
  - Jaundice [Unknown]
  - Genitourinary symptom [Unknown]
  - Blood glucose abnormal [Unknown]
  - Rash [Not Recovered/Not Resolved]
  - Illness [Unknown]
  - Influenza like illness [Unknown]
  - Pain [Unknown]
  - Herpes zoster [Unknown]
  - COVID-19 [Unknown]
  - Influenza like illness [Unknown]
  - Illness [Unknown]
  - Herpes zoster [Unknown]
  - Memory impairment [Unknown]

NARRATIVE: CASE EVENT DATE: 20220101
